FAERS Safety Report 15764205 (Version 2)
Quarter: 2019Q1

REPORT INFORMATION
  Report Type: Spontaneous
  Country: US (occurrence: US)
  Receive Date: 20181227
  Receipt Date: 20190102
  Transmission Date: 20190417
  Serious: Yes (Hospitalization)
  Sender: FDA-Public Use
  Company Number: US-GBPHLPEH-2017-PEL-003276

PATIENT

DRUGS (10)
  1. GABLOFEN [Suspect]
     Active Substance: BACLOFEN
     Indication: CEREBRAL PALSY
     Dosage: 165 ?G, QD
     Route: 037
  2. GABLOFEN [Suspect]
     Active Substance: BACLOFEN
     Dosage: UNK
     Route: 037
  3. MULTIVITAMIN                       /07504101/ [Concomitant]
     Active Substance: VITAMINS
     Dosage: 2, QD
     Route: 048
  4. GABAPENTIN. [Concomitant]
     Active Substance: GABAPENTIN
     Dosage: 200 MG, TID
     Route: 048
  5. GABLOFEN [Suspect]
     Active Substance: BACLOFEN
     Indication: MUSCLE SPASTICITY
     Dosage: 250 ?G, QD
     Route: 037
     Dates: start: 20100512
  6. KETOROLAC [Concomitant]
     Active Substance: KETOROLAC\KETOROLAC TROMETHAMINE
     Dosage: 60 MG, QD
     Route: 030
  7. ACETAMINOPHEN. [Concomitant]
     Active Substance: ACETAMINOPHEN
     Dosage: 500 MG, EVERY 6 HOURS, PRN
     Route: 048
  8. TRAMADOL. [Concomitant]
     Active Substance: TRAMADOL
     Dosage: 50 MG, TID
     Route: 048
  9. CEFDINIR. [Concomitant]
     Active Substance: CEFDINIR
     Dosage: 600 MG, QD
     Route: 048
  10. NABUMETONE. [Concomitant]
     Active Substance: NABUMETONE
     Dosage: 500 MG, BID
     Route: 048

REACTIONS (10)
  - Back pain [Not Recovered/Not Resolved]
  - Migraine [Unknown]
  - Photophobia [Recovered/Resolved]
  - Pruritus [Unknown]
  - Pain in extremity [Not Recovered/Not Resolved]
  - Muscle spasticity [Unknown]
  - Clonus [Recovered/Resolved]
  - Device failure [Unknown]
  - Device end of service [Recovered/Resolved]
  - Implant site extravasation [Unknown]

NARRATIVE: CASE EVENT DATE: 2017
